FAERS Safety Report 4669997-9 (Version None)
Quarter: 2005Q2

REPORT INFORMATION
  Report Type: 
  Country: None (occurrence: None)
  Receive Date: 20050523
  Receipt Date: 20050203
  Transmission Date: 20051028
  Serious: Yes (Hospitalization, Other)
  Sender: FDA-Public Use
  Company Number: PHNU2005DE00924

PATIENT
  Sex: Female
  Weight: 70 kg

DRUGS (7)
  1. DIOVAN [Suspect]
     Indication: HYPERTENSION
     Dosage: 160 MG/D
     Route: 048
     Dates: start: 20010501
  2. BISOPROLOL FUMARATE [Suspect]
     Dosage: 10 MG/D
     Dates: start: 19901201
  3. CARMEN [Suspect]
     Dosage: 20 MG/D
     Route: 048
     Dates: start: 20040701
  4. DYTIDE H [Suspect]
     Route: 048
     Dates: start: 20050101
  5. DOXAZOMERCK [Suspect]
     Dosage: 2 MG/D
     Route: 048
     Dates: start: 20050101
  6. TEGRETOL [Suspect]
     Indication: EPILEPSY
     Dosage: 800 MG/D
     Route: 048
  7. RIVOTRIL [Concomitant]

REACTIONS (5)
  - BLOOD PRESSURE INCREASED [None]
  - DRUG INEFFECTIVE [None]
  - HYPONATRAEMIA [None]
  - LOSS OF CONSCIOUSNESS [None]
  - SOMNOLENCE [None]
